FAERS Safety Report 24063691 (Version 1)
Quarter: 2024Q3

REPORT INFORMATION
  Report Type: Spontaneous
  Country: US (occurrence: US)
  Receive Date: 20240709
  Receipt Date: 20240709
  Transmission Date: 20241016
  Serious: No
  Sender: AMGEN
  Company Number: US-AMGEN-USASP2024134384

PATIENT
  Sex: Male
  Weight: 74.966 kg

DRUGS (4)
  1. TEPEZZA [Suspect]
     Active Substance: TEPROTUMUMAB-TRBW
     Indication: Toxic goitre
     Dosage: UNK
     Route: 042
  2. TEPEZZA [Suspect]
     Active Substance: TEPROTUMUMAB-TRBW
     Indication: Exophthalmos
     Dosage: UNKNOWN
     Route: 042
     Dates: start: 20240329
  3. STERILE WATER [Concomitant]
     Active Substance: WATER
     Dosage: UNK
  4. SODIUM CHLORIDE [Concomitant]
     Active Substance: SODIUM CHLORIDE
     Dosage: UNK

REACTIONS (1)
  - Blood glucose increased [Unknown]
